FAERS Safety Report 6242035-2 (Version None)
Quarter: 2009Q2

REPORT INFORMATION
  Report Type: 
  Country: None (occurrence: None)
  Receive Date: 20090623
  Receipt Date: 20090611
  Transmission Date: 20091009
  Serious: Yes (Hospitalization, Other)
  Sender: FDA-Public Use
  Company Number: PHHY2009US15806

PATIENT
  Sex: Male
  Weight: 79.365 kg

DRUGS (9)
  1. EXJADE [Suspect]
     Indication: SERUM FERRITIN INCREASED
     Dosage: UNK
     Dates: start: 20070713
  2. EXJADE [Suspect]
     Indication: HAEMOLYTIC ANAEMIA
     Dosage: 2000 MG/DAY
     Route: 048
     Dates: start: 20090327, end: 20090412
  3. EXJADE [Suspect]
     Indication: IRON OVERLOAD
     Dosage: 500 MG, QD
     Route: 048
     Dates: start: 20080623
  4. PREDNISONE [Suspect]
     Indication: VASCULITIS
     Dosage: 80 MG, UNK
  5. COUMADIN [Suspect]
     Dosage: UNK
     Dates: end: 20071101
  6. MONTELUKAST SODIUM [Concomitant]
     Dosage: 25 MG, PRN
  7. ASCORBIC ACID [Concomitant]
     Dosage: 500 MG, QD
  8. PEPCID AC [Concomitant]
     Dosage: UNK
  9. REVATIO [Concomitant]

REACTIONS (21)
  - ARTHRALGIA [None]
  - DIVERTICULITIS [None]
  - EPISTAXIS [None]
  - GASTROINTESTINAL HAEMORRHAGE [None]
  - GOUTY ARTHRITIS [None]
  - HAEMOLYSIS [None]
  - HYPERGLYCAEMIA [None]
  - INCREASED APPETITE [None]
  - JAUNDICE [None]
  - LEUKOCYTOCLASTIC VASCULITIS [None]
  - PROTEINURIA [None]
  - PURPURA [None]
  - PYELONEPHRITIS [None]
  - PYREXIA [None]
  - RASH [None]
  - RENAL FAILURE [None]
  - SERUM FERRITIN INCREASED [None]
  - SKIN LESION [None]
  - TOOTH ABSCESS [None]
  - URINARY TRACT INFECTION [None]
  - VIRAL INFECTION [None]
